FAERS Safety Report 17725516 (Version 1)
Quarter: 2020Q2

REPORT INFORMATION
  Report Type: Spontaneous
  Country: US (occurrence: US)
  Receive Date: 20200429
  Receipt Date: 20200429
  Transmission Date: 20200714
  Serious: No
  Sender: FDA-Public Use
  Company Number: US-ALVOGEN-2019-ALVOGEN-102035

PATIENT

DRUGS (1)
  1. MACROBID [Suspect]
     Active Substance: NITROFURANTOIN\NITROFURANTOIN MONOHYDRATE
     Indication: URINARY TRACT INFECTION
     Dates: start: 20191014, end: 20191018

REACTIONS (3)
  - Product quality issue [Unknown]
  - Vaginal haemorrhage [Unknown]
  - Pyrexia [Unknown]

NARRATIVE: CASE EVENT DATE: 20191014
